FAERS Safety Report 8854271 (Version 1)
Quarter: 2012Q4

REPORT INFORMATION
  Report Type: Spontaneous
  Country: US (occurrence: None)
  Receive Date: 20121018
  Receipt Date: 20121018
  Transmission Date: 20130627
  Serious: Yes (Other)
  Sender: FDA-Public Use
  Company Number: AUR-APL-2012-04433

PATIENT
  Age: 52 Year
  Sex: Female
  Weight: 7.83 kg

DRUGS (9)
  1. METOPROLOL [Suspect]
     Indication: BLOOD PRESSURE ABNORMAL
     Dates: end: 2012
  2. TAPAZOLE [Suspect]
     Indication: GRAVES^ OPHTHALMOPATHY
     Route: 048
     Dates: start: 201202
  3. TAPAZOLE [Suspect]
     Indication: GRAVES^ OPHTHALMOPATHY
     Dates: start: 2012, end: 20120821
  4. TAPAZOLE [Suspect]
     Indication: GRAVES^ OPHTHALMOPATHY
     Dates: start: 20120904
  5. TAPAZOLE [Suspect]
     Indication: GRAVES^ OPHTHALMOPATHY
     Dates: start: 20120904
  6. TAPAZOLE [Suspect]
     Indication: GRAVES^ OPHTHALMOPATHY
     Dates: start: 20121002
  7. PREDNISONE (PREDNISONE) [Suspect]
     Indication: GRAVES^ OPHTHALMOPATHY
     Dates: start: 201205, end: 2012
  8. COLESTYRAMINE [Suspect]
     Indication: GRAVES^ OPHTHALMOPATHY
     Dates: start: 201205, end: 20120521
  9. PROPRANOLOL [Concomitant]

REACTIONS (25)
  - Weight increased [None]
  - Pain [None]
  - Muscle tightness [None]
  - Gait disturbance [None]
  - Lupus-like syndrome [None]
  - Malaise [None]
  - Thyroid function test abnormal [None]
  - Abdominal distension [None]
  - Malaise [None]
  - Insomnia [None]
  - Dysstasia [None]
  - Heart rate increased [None]
  - Thyroxine free increased [None]
  - Thyroxine free decreased [None]
  - Vitamin D decreased [None]
  - Hypersomnia [None]
  - Pain in extremity [None]
  - Pain in extremity [None]
  - Swelling face [None]
  - Hypothyroidism [None]
  - Somnolence [None]
  - Fatigue [None]
  - Eye swelling [None]
  - Snoring [None]
  - Atrial fibrillation [None]
